FAERS Safety Report 8061439-9 (Version None)
Quarter: 2012Q1

REPORT INFORMATION
  Report Type: 
  Country: None (occurrence: None)
  Receive Date: 20120120
  Receipt Date: 20111031
  Transmission Date: 20120608
  Serious: No
  Sender: FDA-Public Use
  Company Number: US-ALLERGAN-1114331US

PATIENT
  Age: 65 Year
  Sex: Female
  Weight: 81.633 kg

DRUGS (3)
  1. RESTASIS [Suspect]
     Indication: EYE IRRITATION
     Dosage: 2 UNK, UNK
     Route: 047
     Dates: start: 20110722
  2. LOTEMAX [Concomitant]
     Indication: PRODUCT USED FOR UNKNOWN INDICATION
     Dosage: 2 GTT, BID
     Route: 047
  3. NEVANAC [Concomitant]
     Indication: PRODUCT USED FOR UNKNOWN INDICATION
     Dosage: UNK
     Route: 047

REACTIONS (1)
  - EYE DISCHARGE [None]
